FAERS Safety Report 6608322-0 (Version None)
Quarter: 2010Q1

REPORT INFORMATION
  Report Type: 
  Country: None (occurrence: None)
  Receive Date: 20100301
  Receipt Date: 20100216
  Transmission Date: 20100710
  Serious: Yes (Life-Threatening, Hospitalization)
  Sender: FDA-Public Use
  Company Number: US-GENZYME-CLOF-1000867

PATIENT
  Sex: Male

DRUGS (9)
  1. CLOFARABINE [Suspect]
     Indication: ACUTE MYELOID LEUKAEMIA
     Dosage: UNK UNK, UNK CYCLE 1
     Route: 042
     Dates: start: 20091204, end: 20091208
  2. CLOFARABINE [Suspect]
     Dosage: UNK UNK, UNK CYCLE 2
     Route: 042
     Dates: start: 20100122
  3. ETOPOSIDE [Suspect]
     Indication: ACUTE MYELOID LEUKAEMIA
     Dosage: UNK UNK, UNK CYCLE 1
     Route: 042
     Dates: start: 20091201, end: 20091201
  4. ETOPOSIDE [Suspect]
     Dosage: UNK UNK, UNK CYCLE 2
     Route: 042
     Dates: start: 20100101, end: 20100101
  5. CYCLOPHOSPHAMIDE [Suspect]
     Indication: ACUTE MYELOID LEUKAEMIA
     Dosage: UNK UNK, UNK
     Route: 042
     Dates: start: 20091201, end: 20091201
  6. CYCLOPHOSPHAMIDE [Suspect]
     Dosage: UNK UNK, UNK
     Route: 042
     Dates: start: 20100101, end: 20100101
  7. GRANULOCYTE COLONY STIMULATING FACTOR [Concomitant]
     Indication: DRUG USE FOR UNKNOWN INDICATION
     Dosage: 180 MCG, QD
     Route: 058
     Dates: start: 20091209, end: 20100120
  8. FLUCONAZOLE [Concomitant]
     Indication: PROPHYLAXIS
     Dosage: 1 UNK, QD
     Route: 048
  9. BACTRIM [Concomitant]
     Indication: PROPHYLAXIS
     Dosage: 400 UNK, QD
     Route: 048

REACTIONS (19)
  - CONFUSIONAL STATE [None]
  - DIZZINESS [None]
  - EYE ROLLING [None]
  - FALL [None]
  - FATIGUE [None]
  - FEBRILE NEUTROPENIA [None]
  - GINGIVAL BLEEDING [None]
  - HAEMOGLOBIN DECREASED [None]
  - HEART RATE INCREASED [None]
  - HYPOTENSION [None]
  - HYPOXIA [None]
  - NEUTROPENIA [None]
  - PULMONARY OEDEMA [None]
  - PULSE ABNORMAL [None]
  - RESPIRATORY RATE INCREASED [None]
  - STREPTOCOCCAL BACTERAEMIA [None]
  - SYNCOPE [None]
  - THROMBOCYTOPENIA [None]
  - TREMOR [None]
